FAERS Safety Report 23303351 (Version 1)
Quarter: 2023Q4

REPORT INFORMATION
  Report Type: Spontaneous
  Country: US (occurrence: None)
  Receive Date: 20231215
  Receipt Date: 20231215
  Transmission Date: 20240109
  Serious: Yes (Death, Hospitalization)
  Sender: FDA-Public Use
  Company Number: 2023A285438

PATIENT
  Age: 47 Year
  Sex: Female

DRUGS (7)
  1. QUETIAPINE [Suspect]
     Active Substance: QUETIAPINE
     Route: 048
  2. METFORMIN [Suspect]
     Active Substance: METFORMIN HYDROCHLORIDE
  3. TEMAZEPAM [Suspect]
     Active Substance: TEMAZEPAM
  4. MIRTAZAPINE [Suspect]
     Active Substance: MIRTAZAPINE
  5. DIPHENHYDRAMINE [Suspect]
     Active Substance: DIPHENHYDRAMINE
  6. OLANZAPINE [Suspect]
     Active Substance: OLANZAPINE
  7. VILAZODONE [Suspect]
     Active Substance: VILAZODONE

REACTIONS (2)
  - Toxicity to various agents [Fatal]
  - Completed suicide [Fatal]
